FAERS Safety Report 4588194-9 (Version None)
Quarter: 2005Q1

REPORT INFORMATION
  Report Type: 
  Country: None (occurrence: None)
  Receive Date: 20050221
  Receipt Date: 20050208
  Transmission Date: 20050727
  Serious: Yes (Death, Life-Threatening, Hospitalization, Disabling, Other)
  Sender: FDA-Public Use
  Company Number: PH-GLAXOSMITHKLINE-B0371838A

PATIENT
  Age: 71 Year
  Sex: Male

DRUGS (1)
  1. AVANDAMET [Suspect]
     Indication: ILL-DEFINED DISORDER
     Route: 065
     Dates: start: 20040726, end: 20041002

REACTIONS (1)
  - HAEMATEMESIS [None]
